FAERS Safety Report 6582113-1 (Version None)
Quarter: 2010Q1

REPORT INFORMATION
  Report Type: 
  Country: None (occurrence: None)
  Receive Date: 20100212
  Receipt Date: 20100212
  Transmission Date: 20100710
  Serious: Yes (Hospitalization)
  Sender: FDA-Public Use
  Company Number: None

PATIENT
  Sex: Male
  Weight: 36.7 kg

DRUGS (6)
  1. CYTARABINE [Suspect]
     Dosage: 720 MG
     Dates: end: 20100122
  2. MERCAPTOPURINE [Suspect]
     Dosage: 1050 MG
     Dates: end: 20100125
  3. METHOTREXATE [Suspect]
     Dosage: 60 MG
     Dates: end: 20100202
  4. PEG-L ASPARAGINASE (K-H) [Suspect]
     Dosage: 3000 IU
     Dates: end: 20100126
  5. VINCRISTINE SULFATE [Suspect]
     Dosage: 3.6 MG
  6. CYCLOPHOSPHAMIDE [Suspect]
     Dosage: 1200 MG
     Dates: end: 20100112

REACTIONS (10)
  - AREFLEXIA [None]
  - CONVULSION [None]
  - FACIAL PALSY [None]
  - HEMIPARESIS [None]
  - MUSCULAR WEAKNESS [None]
  - NAUSEA [None]
  - NEUROPATHY PERIPHERAL [None]
  - PARESIS CRANIAL NERVE [None]
  - SPEECH DISORDER [None]
  - THERAPEUTIC AGENT TOXICITY [None]
